FAERS Safety Report 9188861 (Version 2)
Quarter: 2013Q4

REPORT INFORMATION
  Report Type: Spontaneous
  Country: US (occurrence: US)
  Receive Date: 20130326
  Receipt Date: 20131029
  Transmission Date: 20140711
  Serious: Yes (Hospitalization, Other)
  Sender: FDA-Public Use
  Company Number: US-PFIZER INC-2013093118

PATIENT
  Age: 27 Year
  Sex: Male
  Weight: 73 kg

DRUGS (6)
  1. CHANTIX [Suspect]
     Dosage: UNK
     Dates: start: 20080701, end: 20080901
  2. CHANTIX [Suspect]
     Dosage: STARTER PACK
     Dates: start: 20080826
  3. CHANTIX [Suspect]
     Dosage: 1 MG, MAINTENANCE PACK
     Dates: start: 20080927
  4. XANAX [Suspect]
     Dosage: 0.5 MG, UNK
     Dates: start: 20080702
  5. PROZAC [Concomitant]
     Dosage: 20 MG, DAILY
     Dates: start: 20080826
  6. SEROQUEL [Concomitant]
     Dosage: 300 MG, 1X/DAY (AT BED TIME)
     Dates: start: 20080826

REACTIONS (4)
  - Intentional overdose [Unknown]
  - Suicide attempt [Unknown]
  - Acute respiratory failure [Recovered/Resolved]
  - Suicide attempt [Unknown]
